FAERS Safety Report 17752587 (Version 1)
Quarter: 2020Q2

REPORT INFORMATION
  Report Type: Spontaneous
  Country: NL (occurrence: NL)
  Receive Date: 20200506
  Receipt Date: 20200506
  Transmission Date: 20200714
  Serious: Yes (Hospitalization)
  Sender: FDA-Public Use
  Company Number: NL-BAYER-2020-072388

PATIENT
  Age: 68 Year
  Sex: Male
  Weight: 75 kg

DRUGS (4)
  1. AMOXICILLINE [AMOXICILLIN SODIUM] [Concomitant]
     Active Substance: AMOXICILLIN SODIUM
     Dosage: TABLET, 500 MG (MILLIGRAM)
  2. CHLOROQUINE. [Suspect]
     Active Substance: CHLOROQUINE
     Indication: COVID-19
     Dosage: 300 MG
     Dates: start: 20200325, end: 20200328
  3. FRAXIPARINE [Concomitant]
     Active Substance: NADROPARIN CALCIUM
     Dosage: INJECTION LIQUID, 9500 IE/ML (UNITS PER MILLILITER)
  4. CEFTRIAXON [Concomitant]
     Active Substance: CEFTRIAXONE
     Dosage: FOR INFUSION, 2000 MG (MILLIGRAMS)

REACTIONS (2)
  - Sexual inhibition [Recovered/Resolved]
  - Abnormal behaviour [Recovered/Resolved]

NARRATIVE: CASE EVENT DATE: 20200331
